FAERS Safety Report 5217773-0 (Version None)
Quarter: 2006Q4

REPORT INFORMATION
  Report Type: 
  Country: None (occurrence: None)
  Receive Date: 20061130
  Receipt Date: 20060821
  Transmission Date: 20070319
  Serious: Yes (Hospitalization)
  Sender: FDA-Public Use
  Company Number: US200608004618

PATIENT
  Age: 39 Year
  Sex: Male

DRUGS (2)
  1. ZYPREXA [Suspect]
     Dosage: SEE IMAGE
  2. . [Concomitant]

REACTIONS (2)
  - DIABETES MELLITUS [None]
  - PANCREATITIS [None]
